FAERS Safety Report 14037117 (Version 1)
Quarter: 2017Q4

REPORT INFORMATION
  Report Type: Spontaneous
  Country: CA (occurrence: CA)
  Receive Date: 20171004
  Receipt Date: 20171004
  Transmission Date: 20180321
  Serious: Yes (Other)
  Sender: FDA-Public Use
  Company Number: CA-ORION CORPORATION ORION PHARMA-TREX2017-2924

PATIENT
  Age: 66 Year
  Sex: Female

DRUGS (4)
  1. ACTEMRA [Suspect]
     Active Substance: TOCILIZUMAB
     Route: 065
  2. ARAVA [Suspect]
     Active Substance: LEFLUNOMIDE
     Route: 065
  3. METHOTREXATE (TRADE NAME UNKNOWN) [Suspect]
     Active Substance: METHOTREXATE
     Indication: RHEUMATOID ARTHRITIS
     Route: 048
  4. METHOTREXATE (TRADE NAME UNKNOWN) [Suspect]
     Active Substance: METHOTREXATE
     Route: 058

REACTIONS (2)
  - Drug intolerance [Unknown]
  - Gastrointestinal disorder [Unknown]
